FAERS Safety Report 21530612 (Version 4)
Quarter: 2023Q2

REPORT INFORMATION
  Report Type: Spontaneous
  Country: US (occurrence: US)
  Receive Date: 20221031
  Receipt Date: 20230605
  Transmission Date: 20230721
  Serious: Yes (Hospitalization)
  Sender: FDA-Public Use
  Company Number: US-BoehringerIngelheim-2022-BI-200265

PATIENT
  Age: 80 Year
  Sex: Female

DRUGS (2)
  1. JARDIANCE [Suspect]
     Active Substance: EMPAGLIFLOZIN
     Indication: Product used for unknown indication
     Route: 048
     Dates: start: 2023
  2. JARDIANCE [Suspect]
     Active Substance: EMPAGLIFLOZIN
     Route: 048
     Dates: start: 20220524

REACTIONS (3)
  - Knee operation [Unknown]
  - Memory impairment [Unknown]
  - Atrial fibrillation [Unknown]

NARRATIVE: CASE EVENT DATE: 20230101
